FAERS Safety Report 6551410-8 (Version None)
Quarter: 2010Q1

REPORT INFORMATION
  Report Type: 
  Country: None (occurrence: None)
  Receive Date: 20100126
  Receipt Date: 20100121
  Transmission Date: 20100710
  Serious: Yes (Disabling)
  Sender: FDA-Public Use
  Company Number: GB-NAPPMUNDI-GBR-2010-0006035

PATIENT
  Age: 74 Year

DRUGS (16)
  1. OXYCODONE HCL [Suspect]
     Indication: DRUG USE FOR UNKNOWN INDICATION
  2. CODEINE PHOSPHATE [Suspect]
     Indication: DRUG USE FOR UNKNOWN INDICATION
     Dosage: 30 MG, UNK
  3. DEXTROPROPOXYPHENE [Suspect]
     Indication: DRUG USE FOR UNKNOWN INDICATION
  4. PARACETAMOL [Suspect]
     Indication: DRUG USE FOR UNKNOWN INDICATION
     Dosage: 500 MG, UNK
  5. ACETAZOLAMIDE [Concomitant]
  6. ALLOPURINOL [Concomitant]
  7. ASPIRIN [Concomitant]
  8. CALCITRIOL [Concomitant]
  9. CELECOXIB [Concomitant]
  10. DOTHIEPIN                          /00160401/ [Concomitant]
  11. FLUNITRAZEPAM [Concomitant]
  12. FUROSEMIDE [Concomitant]
  13. METOPROLOL TARTRATE [Concomitant]
  14. PREDNISOLONE [Concomitant]
  15. RAMIPRIL [Concomitant]
  16. SODIUM BICARBONATE [Concomitant]

REACTIONS (1)
  - DEAFNESS NEUROSENSORY [None]
